FAERS Safety Report 4868270-3 (Version None)
Quarter: 2005Q4

REPORT INFORMATION
  Report Type: 
  Country: None (occurrence: None)
  Receive Date: 20051229
  Receipt Date: 20050914
  Transmission Date: 20060501
  Serious: Yes (Death, Disabling)
  Sender: FDA-Public Use
  Company Number: US-MERCK-0509USA02122

PATIENT
  Age: 79 Year
  Sex: Male

DRUGS (2)
  1. VIOXX [Suspect]
     Indication: ARTHRITIS
     Route: 048
     Dates: start: 20010202, end: 20030906
  2. VIOXX [Suspect]
     Route: 048
     Dates: start: 20010202, end: 20030906

REACTIONS (2)
  - CEREBROVASCULAR ACCIDENT [None]
  - TRANSIENT ISCHAEMIC ATTACK [None]
